FAERS Safety Report 11630246 (Version 3)
Quarter: 2015Q4

REPORT INFORMATION
  Report Type: Spontaneous
  Country: GB (occurrence: GB)
  Receive Date: 20151014
  Receipt Date: 20151102
  Transmission Date: 20160304
  Serious: Yes (Hospitalization)
  Sender: FDA-Public Use
  Company Number: GB-JNJFOC-20151007652

PATIENT
  Age: 46 Year
  Sex: Female

DRUGS (1)
  1. SIMPONI [Suspect]
     Active Substance: GOLIMUMAB
     Indication: GASTROINTESTINAL DISORDER
     Route: 058
     Dates: start: 20150917

REACTIONS (4)
  - Colectomy [Unknown]
  - Off label use [Unknown]
  - Cardiac disorder [Unknown]
  - Product use issue [Unknown]

NARRATIVE: CASE EVENT DATE: 201509
